FAERS Safety Report 17869856 (Version 1)
Quarter: 2020Q2

REPORT INFORMATION
  Report Type: Spontaneous
  Country: GR (occurrence: GR)
  Receive Date: 20200608
  Receipt Date: 20200608
  Transmission Date: 20200714
  Serious: Yes (Other)
  Sender: FDA-Public Use
  Company Number: GR-ASTELLAS-2020US019068

PATIENT
  Age: 76 Year
  Sex: Male

DRUGS (2)
  1. XTANDI [Suspect]
     Active Substance: ENZALUTAMIDE
     Indication: PRODUCT USED FOR UNKNOWN INDICATION
     Dosage: 160 MG (4X40 MG), ONCE DAILY
     Route: 048
     Dates: start: 201910
  2. ARVEKAP [Concomitant]
     Active Substance: TRIPTORELIN
     Indication: PRODUCT USED FOR UNKNOWN INDICATION
     Dosage: UNK UNK, ONCE EVERY 3 MONTHS
     Route: 065

REACTIONS (5)
  - Testicular atrophy [Not Recovered/Not Resolved]
  - Tension headache [Not Recovered/Not Resolved]
  - Vision blurred [Not Recovered/Not Resolved]
  - Testicular pain [Not Recovered/Not Resolved]
  - Asthenia [Not Recovered/Not Resolved]
